FAERS Safety Report 10186155 (Version 1)
Quarter: 2014Q2

REPORT INFORMATION
  Report Type: Spontaneous
  Country: HR (occurrence: HR)
  Receive Date: 20140521
  Receipt Date: 20140521
  Transmission Date: 20141212
  Serious: Yes (Hospitalization)
  Sender: FDA-Public Use
  Company Number: ALCN2014HR002921

PATIENT
  Age: 59 Year
  Sex: Female

DRUGS (2)
  1. TOBREX [Suspect]
     Indication: CONJUNCTIVITIS
     Dosage: 1 DF, BID
     Route: 047
     Dates: start: 201401, end: 20140201
  2. TOBREX [Suspect]
     Indication: CONJUNCTIVITIS
     Dosage: 2 GTT, 6QD
     Route: 047
     Dates: start: 201401, end: 20140201

REACTIONS (5)
  - Conjunctivitis [Not Recovered/Not Resolved]
  - Condition aggravated [Not Recovered/Not Resolved]
  - Ocular hyperaemia [Not Recovered/Not Resolved]
  - Lacrimation increased [Not Recovered/Not Resolved]
  - Eye irritation [Not Recovered/Not Resolved]
